FAERS Safety Report 19978228 (Version 1)
Quarter: 2021Q4

REPORT INFORMATION
  Report Type: Spontaneous
  Country: US (occurrence: US)
  Receive Date: 20211019
  Receipt Date: 20211019
  Transmission Date: 20220303
  Serious: No
  Sender: FDA-Public Use
  Company Number: None

PATIENT
  Sex: Female

DRUGS (1)
  1. GATTEX [Suspect]
     Active Substance: TEDUGLUTIDE\WATER
     Indication: Short-bowel syndrome
     Route: 058
     Dates: start: 202107

REACTIONS (5)
  - Needle issue [None]
  - Injection site bruising [None]
  - Injection site pain [None]
  - Abdominal pain upper [None]
  - Frequent bowel movements [None]
